FAERS Safety Report 7200916-7 (Version None)
Quarter: 2010Q4

REPORT INFORMATION
  Report Type: 
  Country: None (occurrence: None)
  Receive Date: 20101228
  Receipt Date: 20101222
  Transmission Date: 20110411
  Serious: Yes (Other)
  Sender: FDA-Public Use
  Company Number: BR-PFIZER INC-2010177415

PATIENT
  Sex: Female

DRUGS (1)
  1. CELEBRA [Suspect]
     Indication: INTERVERTEBRAL DISC PROTRUSION
     Dosage: 200 MG, 2X/DAY
     Route: 048
     Dates: start: 20101216, end: 20101216

REACTIONS (4)
  - CHEST DISCOMFORT [None]
  - COUGH [None]
  - DRY MOUTH [None]
  - DYSPNOEA [None]
